FAERS Safety Report 8726677 (Version 2)
Quarter: 2012Q4

REPORT INFORMATION
  Report Type: 
  Country: ZA (occurrence: ZA)
  Receive Date: 20120816
  Receipt Date: 20120907
  Transmission Date: 20130627
  Serious: Yes (Hospitalization)
  Sender: FDA-Public Use
  Company Number: ZA-ELI_LILLY_AND_COMPANY-ZA201208004006

PATIENT
  Age: 43 None
  Sex: Female

DRUGS (4)
  1. HUMALOG [Suspect]
     Indication: TYPE 2 DIABETES MELLITUS
     Dosage: 30 u, each morning
     Route: 058
     Dates: start: 201111
  2. HUMALOG [Suspect]
     Dosage: 24 u, each evening
     Dates: start: 201111
  3. METFORMIN [Concomitant]
     Indication: TYPE 2 DIABETES MELLITUS
     Dosage: 1000 mg, bid
     Route: 048
     Dates: start: 201111
  4. IRON [Concomitant]
     Indication: IRON DEFICIENCY
     Dosage: 1 DF, each morning
     Route: 048
     Dates: start: 20120625

REACTIONS (1)
  - Tonsillitis [Recovered/Resolved]
